FAERS Safety Report 25689624 (Version 1)
Quarter: 2025Q3

REPORT INFORMATION
  Report Type: Spontaneous
  Country: EU (occurrence: EU)
  Receive Date: 20250818
  Receipt Date: 20250818
  Transmission Date: 20251020
  Serious: Yes (Other)
  Sender: BAUSCH AND LOMB
  Company Number: EU-BAUSCH-BH-2025-016350

PATIENT
  Age: 85 Year
  Sex: Female

DRUGS (4)
  1. DEXAMETHASONE [Suspect]
     Active Substance: DEXAMETHASONE
     Indication: Plasma cell myeloma
  2. DEXAMETHASONE [Suspect]
     Active Substance: DEXAMETHASONE
  3. LENALIDOMIDE [Suspect]
     Active Substance: LENALIDOMIDE
     Indication: Plasma cell myeloma
  4. LENALIDOMIDE [Suspect]
     Active Substance: LENALIDOMIDE

REACTIONS (2)
  - Neutropenia [Recovered/Resolved with Sequelae]
  - Rash [Recovered/Resolved]

NARRATIVE: CASE EVENT DATE: 20250303
